FAERS Safety Report 10655592 (Version 1)
Quarter: 2014Q4

REPORT INFORMATION
  Report Type: Report from Study
  Country: LU (occurrence: LU)
  Receive Date: 20141216
  Receipt Date: 20141216
  Transmission Date: 20150529
  Serious: Yes (Hospitalization)
  Sender: FDA-Public Use
  Company Number: LU-JNJFOC-20141205079

PATIENT
  Age: 74 Year
  Sex: Male
  Weight: 74 kg

DRUGS (1)
  1. IBRITUNIB [Suspect]
     Active Substance: IBRUTINIB
     Indication: LYMPHOCYTIC LEUKAEMIA
     Route: 048
     Dates: start: 20141017, end: 20141125

REACTIONS (3)
  - Platelet count decreased [None]
  - Leukopenia [Recovering/Resolving]
  - Haemoglobin decreased [None]

NARRATIVE: CASE EVENT DATE: 20141118
